FAERS Safety Report 8750694 (Version 2)
Quarter: 2012Q4

REPORT INFORMATION
  Report Type: Spontaneous
  Country: US (occurrence: None)
  Receive Date: 20120810
  Receipt Date: 20120824
  Transmission Date: 20130627
  Serious: Yes (Other)
  Sender: FDA-Public Use
  Company Number: 1207-405

PATIENT
  Age: 84 Year
  Sex: Female

DRUGS (19)
  1. EYLEA [Suspect]
     Dosage: INTRAVITREAL
     Dates: start: 20120328, end: 20120523
  2. ZOCOR [Concomitant]
  3. VITAMIN E [Concomitant]
  4. VITAMIN D [Concomitant]
  5. VITAMIN B (VITAMIN-B-COMPLEX STANDARD) [Concomitant]
  6. VICODIN [Concomitant]
  7. TEMAZEPAM [Concomitant]
  8. NIACIN [Concomitant]
  9. POTASSIUM (POTASSIUM) [Concomitant]
  10. MULTI-VITAMIN [Concomitant]
  11. METOPROLOL-HCTZ (CO-BETALOC) [Concomitant]
  12. GLUCOSAMINE (GLUCOSAMINE) [Concomitant]
  13. FISH OIL (FISH OIL) [Concomitant]
  14. DIOVAN [Concomitant]
  15. CALCIUM CARBONATE [Concomitant]
  16. ACETYLSALICYLIC ACID (ASA) (ACETYLSALICYLIC ACID) [Concomitant]
  17. ANTACID (DIOVOL) [Concomitant]
  18. AMLODIPINE [Concomitant]
  19. ALLOPURINOL [Concomitant]

REACTIONS (2)
  - ENDOPHTHALMITIS [None]
  - UVEITIS [None]
